FAERS Safety Report 24399739 (Version 4)
Quarter: 2025Q1

REPORT INFORMATION
  Report Type: Report from Study
  Country: FR (occurrence: FR)
  Receive Date: 20241005
  Receipt Date: 20250206
  Transmission Date: 20250408
  Serious: Yes (Other)
  Sender: AUROBINDO
  Company Number: FR-UCBSA-2024047711

PATIENT
  Age: 70 Year
  Sex: Female

DRUGS (4)
  1. CETIRIZINE [Suspect]
     Active Substance: CETIRIZINE HYDROCHLORIDE
     Indication: Chronic spontaneous urticaria
     Route: 065
  2. FEXOFENADINE [Suspect]
     Active Substance: FEXOFENADINE HYDROCHLORIDE
     Indication: Chronic spontaneous urticaria
     Route: 065
  3. LORATADINE [Suspect]
     Active Substance: LORATADINE
     Indication: Chronic spontaneous urticaria
     Route: 065
  4. DEXCHLORPHENIRAMINE [Suspect]
     Active Substance: DEXCHLORPHENIRAMINE
     Indication: Chronic spontaneous urticaria
     Route: 065

REACTIONS (6)
  - Angioedema [Unknown]
  - Dyspnoea [Unknown]
  - Urticaria [Unknown]
  - Paradoxical drug reaction [Unknown]
  - Drug hypersensitivity [Unknown]
  - Off label use [Unknown]
